FAERS Safety Report 11986356 (Version 2)
Quarter: 2016Q1

REPORT INFORMATION
  Report Type: Report from Study
  Country: US (occurrence: US)
  Receive Date: 20160202
  Receipt Date: 20160211
  Transmission Date: 20160526
  Serious: No
  Sender: FDA-Public Use
  Company Number: US-AMGEN-USASL2016010507

PATIENT
  Age: 55 Year
  Sex: Female

DRUGS (1)
  1. ENBREL [Suspect]
     Active Substance: ETANERCEPT
     Indication: RHEUMATOID ARTHRITIS
     Dosage: 50 MG, QWK
     Route: 065
     Dates: start: 20151207

REACTIONS (10)
  - Condition aggravated [Unknown]
  - Injection site pruritus [Recovered/Resolved]
  - Hypoaesthesia [Unknown]
  - Muscular weakness [Unknown]
  - Injection site swelling [Recovered/Resolved]
  - Device failure [Unknown]
  - Swelling [Unknown]
  - Injection site induration [Recovered/Resolved]
  - Arthralgia [Not Recovered/Not Resolved]
  - Injection site warmth [Recovered/Resolved]
